FAERS Safety Report 17971576 (Version 1)
Quarter: 2020Q3

REPORT INFORMATION
  Report Type: Spontaneous
  Country: LU (occurrence: LU)
  Receive Date: 20200702
  Receipt Date: 20200702
  Transmission Date: 20201103
  Serious: Yes (Other)
  Sender: FDA-Public Use
  Company Number: LU-REGENERON PHARMACEUTICALS, INC.-2020-47057

PATIENT

DRUGS (2)
  1. EYLEA [Suspect]
     Active Substance: AFLIBERCEPT
     Dosage: 1 DF, ONCE, LAST EYLEA INJECTION PRIOR TO THE ADVERSE EVENT
     Dates: start: 20200110, end: 20200110
  2. EYLEA [Suspect]
     Active Substance: AFLIBERCEPT
     Indication: CYSTOID MACULAR OEDEMA
     Dosage: UNK, UNKNOWN NUMBER OF EYLEA INJECTIONS PRIOR TO THE ADVERSE EVENTS

REACTIONS (4)
  - Retinal degeneration [Not Recovered/Not Resolved]
  - Eye inflammation [Not Recovered/Not Resolved]
  - Product use in unapproved indication [Unknown]
  - Off label use [Unknown]
